FAERS Safety Report 9169654 (Version 2)
Quarter: 2014Q1

REPORT INFORMATION
  Report Type: Report from Study
  Country: US (occurrence: US)
  Receive Date: 20130318
  Receipt Date: 20140131
  Transmission Date: 20141002
  Serious: Yes (Other)
  Sender: FDA-Public Use
  Company Number: US-ROCHE-660741

PATIENT
  Sex: 0

DRUGS (5)
  1. BEVACIZUMAB [Suspect]
     Indication: METASTASES TO LIVER
     Dosage: ON DAY 3
     Route: 042
  2. HEPARIN SODIUM [Suspect]
     Indication: PRODUCT USED FOR UNKNOWN INDICATION
     Dosage: ON DAYS 1 AND 2
     Route: 013
  3. 5-FLUOROURACIL [Suspect]
     Indication: METASTASES TO LIVER
     Dosage: A 300-MG/M2 BOLUS OF 5-FU PLUS 600 MG/M2 5-FU IN 250 ML DEXTROSE 5% IN WATER AS A CONTINUOUS IV INFU
     Route: 042
  4. LEUCOVORIN [Suspect]
     Indication: METASTASES TO LIVER
     Dosage: DAYS 1-2
     Route: 042
  5. OXALIPLATIN [Suspect]
     Indication: METASTASES TO LIVER
     Dosage: FROM 60 MG/M2 TO 175 MG/M2 INTRA-ARTERIALLY OVER 2 HOURS, ON DAY 1
     Route: 013

REACTIONS (10)
  - Hyperbilirubinaemia [Unknown]
  - Hypoalbuminaemia [Unknown]
  - Alanine aminotransferase abnormal [Unknown]
  - Aspartate aminotransferase abnormal [Unknown]
  - Hypokalaemia [Unknown]
  - Thrombocytopenia [Unknown]
  - Fatigue [Unknown]
  - Neutropenia [Unknown]
  - Anaemia [Unknown]
  - Leukopenia [Unknown]
